FAERS Safety Report 9328143 (Version 1)
Quarter: 2013Q2

REPORT INFORMATION
  Report Type: Spontaneous
  Country: US (occurrence: US)
  Receive Date: 20130604
  Receipt Date: 20130604
  Transmission Date: 20140414
  Serious: Yes (Other)
  Sender: FDA-Public Use
  Company Number: US-SANOFI-AVENTIS-2012SA036107

PATIENT
  Age: 71 Year
  Sex: Male
  Weight: 72.6 kg

DRUGS (6)
  1. LANTUS [Suspect]
     Indication: TYPE 2 DIABETES MELLITUS
     Dosage: DOSE:16 UNIT(S)
     Route: 058
     Dates: start: 2002
  2. LANTUS [Suspect]
     Indication: TYPE 2 DIABETES MELLITUS
     Dosage: 22-23 UNITS
     Route: 058
  3. LANTUS [Suspect]
     Indication: TYPE 2 DIABETES MELLITUS
     Dosage: DOSE:25 UNIT(S)
     Route: 058
  4. JANUVIA [Concomitant]
  5. METFORMIN [Concomitant]
  6. DEFLAZACORT [Concomitant]

REACTIONS (5)
  - Hypoglycaemia [Recovered/Resolved]
  - Injection site mass [Unknown]
  - Injection site pain [Not Recovered/Not Resolved]
  - Diabetes mellitus inadequate control [Not Recovered/Not Resolved]
  - Injection site haemorrhage [Unknown]
